FAERS Safety Report 11111501 (Version 1)
Quarter: 2015Q2

REPORT INFORMATION
  Report Type: Report from Study
  Country: US (occurrence: US)
  Receive Date: 20150513
  Receipt Date: 20150513
  Transmission Date: 20150821
  Serious: Yes (Disabling)
  Sender: FDA-Public Use
  Company Number: US-ROCHE-1576506

PATIENT
  Sex: Male

DRUGS (3)
  1. TYLENOL [Concomitant]
     Active Substance: ACETAMINOPHEN
  2. FISH OIL [Concomitant]
     Active Substance: FISH OIL
  3. LUCENTIS [Suspect]
     Active Substance: RANIBIZUMAB
     Indication: MACULAR DEGENERATION
     Route: 065

REACTIONS (5)
  - Colour blindness acquired [Unknown]
  - Glare [Unknown]
  - Blindness [Unknown]
  - Photophobia [Unknown]
  - Hypoacusis [Unknown]
